FAERS Safety Report 8796769 (Version 1)
Quarter: 2012Q4

REPORT INFORMATION
  Report Type: 
  Country: US (occurrence: US)
  Receive Date: 20120919
  Receipt Date: 20120919
  Transmission Date: 20130627
  Serious: No
  Sender: FDA-Public Use
  Company Number: US-BAYER-2012-097309

PATIENT
  Sex: Female

DRUGS (3)
  1. MIRENA [Suspect]
     Indication: CONTRACEPTION
     Dosage: UNK
     Dates: start: 20120314, end: 20120604
  2. MIRENA [Suspect]
     Indication: AMENORRHOEA
  3. MIRENA [Suspect]
     Indication: MENORRHAGIA

REACTIONS (7)
  - Medical device complication [None]
  - Device expulsion [None]
  - Medical device pain [None]
  - Pain [None]
  - Discomfort [None]
  - Abdominal pain upper [None]
  - Muscle spasms [None]
